FAERS Safety Report 6367465-X (Version None)
Quarter: 2009Q3

REPORT INFORMATION
  Report Type: 
  Country: None (occurrence: None)
  Receive Date: 20090921
  Receipt Date: 20090914
  Transmission Date: 20100115
  Serious: Yes (Other)
  Sender: FDA-Public Use
  Company Number: B0593721A

PATIENT
  Age: 60 Year
  Sex: Male

DRUGS (6)
  1. FLUNASE (JAPAN) [Suspect]
     Route: 045
     Dates: start: 20070301, end: 20090325
  2. SEREVENT [Concomitant]
     Indication: ASTHMA
     Dosage: 2 PER DAY
     Route: 055
  3. PULMICORT-100 [Concomitant]
     Indication: ASTHMA
     Dosage: 9 PER DAY
     Route: 055
  4. SINGULAIR [Concomitant]
     Indication: ASTHMA
     Route: 048
  5. CLARITIN REDITABS [Concomitant]
     Route: 048
  6. QVAR 40 [Concomitant]
     Route: 055

REACTIONS (1)
  - NASAL POLYPS [None]
